FAERS Safety Report 10757897 (Version 1)
Quarter: 2015Q1

REPORT INFORMATION
  Report Type: Spontaneous
  Country: BR (occurrence: BR)
  Receive Date: 20150203
  Receipt Date: 20150203
  Transmission Date: 20150721
  Serious: Yes (Hospitalization)
  Sender: FDA-Public Use
  Company Number: BR-ASTRAZENECA-2015SE09769

PATIENT
  Age: 75 Year
  Sex: Male
  Weight: 81 kg

DRUGS (16)
  1. SELOZOK [Suspect]
     Active Substance: METOPROLOL SUCCINATE
     Indication: HYPERTENSION
     Route: 048
  2. ATORVASTATIN [Concomitant]
     Active Substance: ATORVASTATIN
  3. CANDESARTAN [Suspect]
     Active Substance: CANDESARTAN
     Route: 048
  4. QUETIAPINE [Suspect]
     Active Substance: QUETIAPINE
     Indication: DEPRESSION
     Route: 048
  5. MILGAMMA [Concomitant]
     Active Substance: VITAMIN B
     Dosage: DAILY
  6. LANTUS [Concomitant]
     Active Substance: INSULIN GLARGINE
     Dosage: 36 IU
     Dates: end: 201412
  7. FORXIGA [Suspect]
     Active Substance: DAPAGLIFLOZIN
     Indication: DIABETES MELLITUS
     Route: 048
     Dates: start: 201412
  8. DORENE [Concomitant]
  9. DIAMICRON MR [Concomitant]
     Active Substance: GLICLAZIDE
  10. STANGLIT [Concomitant]
  11. ADDERA D3 [Concomitant]
     Active Substance: CHOLECALCIFEROL
     Indication: COELIAC DISEASE
     Dosage: ONCE A WEEK
  12. PRAMIPEXOLE [Concomitant]
     Active Substance: PRAMIPEXOLE
     Dosage: 1 AND 1/2 TABLET/DAILY
  13. CANDESARTAN [Suspect]
     Active Substance: CANDESARTAN
     Route: 048
  14. EXODUS [Concomitant]
     Active Substance: ESCITALOPRAM OXALATE
     Indication: DEPRESSION
  15. ASPIRINA [Concomitant]
     Active Substance: ASPIRIN
  16. FLUX [Concomitant]
     Indication: DIURETIC THERAPY

REACTIONS (6)
  - Ageusia [Recovering/Resolving]
  - Hyperglycaemia [Recovered/Resolved]
  - Weight decreased [Unknown]
  - Dysgeusia [Recovering/Resolving]
  - Syncope [Recovered/Resolved]
  - Coronary artery occlusion [Recovered/Resolved]

NARRATIVE: CASE EVENT DATE: 2014
